FAERS Safety Report 5130365-7 (Version None)
Quarter: 2006Q4

REPORT INFORMATION
  Report Type: 
  Country: None (occurrence: None)
  Receive Date: 20061013
  Receipt Date: 20061009
  Transmission Date: 20070319
  Serious: Yes (Other)
  Sender: FDA-Public Use
  Company Number: US-2006-022891

PATIENT
  Age: 29 Year
  Sex: Female
  Weight: 54 kg

DRUGS (1)
  1. YASMIN [Suspect]
     Dosage: 1 TAB (S), 1X/DAY, ORAL
     Route: 048
     Dates: start: 20030101, end: 20060701

REACTIONS (26)
  - ABDOMINAL PAIN [None]
  - AMENORRHOEA [None]
  - ANXIETY [None]
  - ASTHENIA [None]
  - COLD SWEAT [None]
  - DIZZINESS [None]
  - DYSMENORRHOEA [None]
  - DYSPAREUNIA [None]
  - DYSPNOEA [None]
  - FALL [None]
  - HEADACHE [None]
  - HYPERHIDROSIS [None]
  - HYPERVENTILATION [None]
  - HYPOAESTHESIA FACIAL [None]
  - HYPOVENTILATION [None]
  - LOSS OF CONSCIOUSNESS [None]
  - METRORRHAGIA [None]
  - MUSCLE FATIGUE [None]
  - NAUSEA [None]
  - PARAESTHESIA [None]
  - PARAESTHESIA ORAL [None]
  - PARTIAL SEIZURES [None]
  - SENSORY DISTURBANCE [None]
  - TUNNEL VISION [None]
  - VISION BLURRED [None]
  - VISUAL DISTURBANCE [None]
